FAERS Safety Report 18899216 (Version 1)
Quarter: 2021Q1

REPORT INFORMATION
  Report Type: Other
  Country: AU (occurrence: AU)
  Receive Date: 20210216
  Receipt Date: 20210216
  Transmission Date: 20210420
  Serious: Yes (Other)
  Sender: FDA-Public Use
  Company Number: AU-ASTELLAS-2021US001028

PATIENT
  Age: 60 Year
  Sex: Male

DRUGS (4)
  1. PREDNISOLONE. [Suspect]
     Active Substance: PREDNISOLONE
     Indication: IMMUNOSUPPRESSANT DRUG THERAPY
     Route: 048
  2. TACROLIMUS. [Suspect]
     Active Substance: TACROLIMUS
     Indication: IMMUNOSUPPRESSANT DRUG THERAPY
     Route: 048
  3. TRIMETHOPRIM SULFAMETHOXAZOLE [Suspect]
     Active Substance: SULFAMETHOXAZOLE\TRIMETHOPRIM
     Indication: NOCARDIOSIS
     Dosage: UNK UNK, UNKNOWN FREQ.
     Route: 048
  4. MEROPENEM. [Suspect]
     Active Substance: MEROPENEM
     Indication: NOCARDIOSIS
     Dosage: UNK UNK, UNKNOWN FREQ.
     Route: 042

REACTIONS (1)
  - Therapeutic product effect incomplete [Unknown]
